FAERS Safety Report 8844533 (Version 2)
Quarter: 2013Q3

REPORT INFORMATION
  Report Type: Spontaneous
  Country: CO (occurrence: None)
  Receive Date: 20121012
  Receipt Date: 20130731
  Transmission Date: 20140515
  Serious: Yes (Hospitalization, Other)
  Sender: FDA-Public Use
  Company Number: DSU-2012-08026

PATIENT
  Age: 61 Year
  Sex: Female

DRUGS (1)
  1. OLMETEC [Suspect]
     Indication: HYPERTENSION
     Route: 048
     Dates: start: 2009, end: 20120913

REACTIONS (7)
  - Meniscus operation [None]
  - Osteoporosis [None]
  - Blood cholesterol increased [None]
  - Blood triglycerides increased [None]
  - Bronchitis [None]
  - Pancreas infection [None]
  - Gallbladder operation [None]
